FAERS Safety Report 4696454-6 (Version None)
Quarter: 2005Q2

REPORT INFORMATION
  Report Type: 
  Country: None (occurrence: None)
  Receive Date: 20050620
  Receipt Date: 20050614
  Transmission Date: 20051028
  Serious: Yes (Hospitalization, Other)
  Sender: FDA-Public Use
  Company Number: 2005070544

PATIENT
  Sex: Male

DRUGS (16)
  1. LIPITOR [Suspect]
     Indication: BLOOD CHOLESTEROL INCREASED
     Dosage: 20 MG (20 MG, 1 IN 1 D), ORAL
     Route: 048
     Dates: start: 20020101, end: 20041101
  2. CELEBREX [Suspect]
     Indication: SHOULDER PAIN
     Dosage: 400 MG (200 MG, 2 IN 1 D), ORAL
     Route: 048
     Dates: end: 20040101
  3. METOCLOPRAMIDE [Concomitant]
  4. NEXIUM [Concomitant]
  5. NORVASC [Concomitant]
  6. GLUCOSAMINE W/CHONDROITIN SULFATES (ASCORBIC ACID, CHONDROITIN SULFATE [Concomitant]
  7. WARFARIN SODIUM [Concomitant]
  8. TOPROL-XL [Concomitant]
  9. TERAZOSIN (TERAZOSIN) [Concomitant]
  10. DOXEPIN HCL [Concomitant]
  11. VITAMINS (VITAMINS) [Concomitant]
  12. VITAMIN B COMPLEX CAP [Concomitant]
  13. VITAMIN E [Concomitant]
  14. PLAVIX [Concomitant]
  15. PREVACID [Concomitant]
  16. PROTONIX [Concomitant]

REACTIONS (13)
  - CATHETER RELATED INFECTION [None]
  - COLLAPSE OF LUNG [None]
  - DIVERTICULITIS [None]
  - FATIGUE [None]
  - FEELING COLD [None]
  - LOW DENSITY LIPOPROTEIN INCREASED [None]
  - PNEUMONIA [None]
  - POST PROCEDURAL COMPLICATION [None]
  - POSTOPERATIVE INFECTION [None]
  - RECTAL HAEMORRHAGE [None]
  - ROTATOR CUFF SYNDROME [None]
  - URTICARIA [None]
  - WEIGHT DECREASED [None]
